FAERS Safety Report 23682323 (Version 1)
Quarter: 2024Q1

REPORT INFORMATION
  Report Type: Spontaneous
  Country: US (occurrence: None)
  Receive Date: 20240327
  Receipt Date: 20240327
  Transmission Date: 20240409
  Serious: Yes (Disabling)
  Sender: FDA-Public Use
  Company Number: None

PATIENT
  Age: 68 Year
  Sex: Female
  Weight: 73.8 kg

DRUGS (5)
  1. CIPROFLOXACIN [Suspect]
     Active Substance: CIPROFLOXACIN
     Indication: Diverticulitis
     Dosage: OTHER QUANTITY : 1 CAPSULE(S);?FREQUENCY : TWICE A DAY;?
     Route: 048
     Dates: start: 20240219, end: 20240221
  2. Beta glucan 1000 mg/day [Concomitant]
  3. Km mineral supplement [Concomitant]
  4. 1-a-day Women^s 50+ multi vitamin [Concomitant]
  5. 1 liter carrot juice per day [Concomitant]

REACTIONS (1)
  - Tendon pain [None]

NARRATIVE: CASE EVENT DATE: 20240219
